FAERS Safety Report 5483813-7 (Version None)
Quarter: 2007Q4

REPORT INFORMATION
  Report Type: 
  Country: None (occurrence: None)
  Receive Date: 20071012
  Receipt Date: 20071010
  Transmission Date: 20080405
  Serious: Yes (Other)
  Sender: FDA-Public Use
  Company Number: B0490657A

PATIENT
  Sex: Male

DRUGS (6)
  1. PAXIL [Suspect]
     Indication: DEPRESSION
     Route: 048
     Dates: start: 20050801
  2. LUVOX [Concomitant]
     Route: 048
  3. AMOBAN [Concomitant]
     Route: 048
  4. TRYPTANOL [Concomitant]
     Route: 048
  5. ZOLPIDEM [Concomitant]
     Route: 048
  6. HALCION [Concomitant]
     Route: 048

REACTIONS (2)
  - AGGRESSION [None]
  - ANGER [None]
